FAERS Safety Report 5141633-7 (Version None)
Quarter: 2006Q4

REPORT INFORMATION
  Report Type: 
  Country: None (occurrence: None)
  Receive Date: 20061030
  Receipt Date: 20061030
  Transmission Date: 20070319
  Serious: Yes (Disabling)
  Sender: FDA-Public Use
  Company Number: None

PATIENT
  Age: 30 Year
  Sex: Female
  Weight: 100.2449 kg

DRUGS (1)
  1. MACROBID [Suspect]
     Indication: URINARY TRACT INFECTION
     Dosage: 1 CAPSULE ONCE A DAY PO
     Route: 048
     Dates: start: 20061027, end: 20061027

REACTIONS (4)
  - OEDEMA PERIPHERAL [None]
  - PARAESTHESIA [None]
  - PARAESTHESIA ORAL [None]
  - URTICARIA GENERALISED [None]
